FAERS Safety Report 19658828 (Version 2)
Quarter: 2021Q3

REPORT INFORMATION
  Report Type: Spontaneous
  Country: US (occurrence: US)
  Receive Date: 20210805
  Receipt Date: 20210817
  Transmission Date: 20211014
  Serious: No
  Sender: FDA-Public Use
  Company Number: US-THERATECHNOLOGIES INC.-2021-THE-TES-000023

PATIENT
  Age: 67 Year
  Sex: Male

DRUGS (3)
  1. EGRIFTA SV [Suspect]
     Active Substance: TESAMORELIN ACETATE
     Indication: LIPODYSTROPHY ACQUIRED
     Dosage: UNK UNK, QD
     Route: 058
     Dates: start: 20200930
  2. EGRIFTA SV [Suspect]
     Active Substance: TESAMORELIN ACETATE
     Indication: HIV INFECTION
     Dosage: UNK UNK, QD
     Route: 058
     Dates: start: 202012, end: 202106
  3. EGRIFTA SV [Suspect]
     Active Substance: TESAMORELIN ACETATE
     Dosage: UNK UNK, QD
     Route: 058

REACTIONS (5)
  - Injection site nodule [Not Recovered/Not Resolved]
  - Fat tissue decreased [Unknown]
  - Injection site mass [Recovered/Resolved]
  - Contusion [Recovered/Resolved]
  - Wrong technique in product usage process [Unknown]

NARRATIVE: CASE EVENT DATE: 20210113
